FAERS Safety Report 7219599-5 (Version None)
Quarter: 2011Q1

REPORT INFORMATION
  Report Type: 
  Country: None (occurrence: None)
  Receive Date: 20110103
  Receipt Date: 20101223
  Transmission Date: 20110831
  Serious: Yes (Death)
  Sender: FDA-Public Use
  Company Number: 2010SP002971

PATIENT
  Sex: Male

DRUGS (1)
  1. SAPHRIS [Suspect]
     Indication: BIPOLAR DISORDER
     Dates: start: 20091223, end: 20091224

REACTIONS (3)
  - RESPIRATORY ARREST [None]
  - INTENTIONAL SELF-INJURY [None]
  - ASPHYXIA [None]
